FAERS Safety Report 14174152 (Version 1)
Quarter: 2017Q4

REPORT INFORMATION
  Report Type: Spontaneous
  Country: JP (occurrence: JP)
  Receive Date: 20171109
  Receipt Date: 20171109
  Transmission Date: 20180321
  Serious: Yes (Hospitalization, Other)
  Sender: FDA-Public Use
  Company Number: JP-PFIZER INC-2017412639

PATIENT
  Age: 64 Year
  Sex: Female
  Weight: 46 kg

DRUGS (9)
  1. RHEUMATREX [Suspect]
     Active Substance: METHOTREXATE SODIUM
     Dosage: 8 MG, WEEKLY
     Route: 048
     Dates: start: 20110627, end: 20120424
  2. ASPARA-CA [Concomitant]
     Active Substance: CALCIUM ASPARTATE
     Dosage: UNK
  3. RHEUMATREX [Suspect]
     Active Substance: METHOTREXATE SODIUM
     Dosage: 10 MG, WEEKLY
     Route: 048
     Dates: start: 20120425, end: 20130326
  4. PREDNIZOLON [Concomitant]
     Dosage: UNK
  5. BONALON [Concomitant]
     Active Substance: ALENDRONATE SODIUM
     Dosage: UNK
  6. GASTER [Concomitant]
     Active Substance: FAMOTIDINE
     Dosage: UNK
  7. EDIROL [Concomitant]
     Active Substance: ELDECALCITOL
     Dosage: UNK
  8. RIMATIL [Concomitant]
     Active Substance: BUCILLAMINE
     Dosage: UNK
  9. RHEUMATREX [Suspect]
     Active Substance: METHOTREXATE SODIUM
     Dosage: 12 MG, WEEKLY
     Route: 048
     Dates: start: 20130327, end: 20160105

REACTIONS (1)
  - Salivary gland cancer [Recovered/Resolved]

NARRATIVE: CASE EVENT DATE: 201601
